FAERS Safety Report 5511928-3 (Version None)
Quarter: 2007Q4

REPORT INFORMATION
  Report Type: 
  Country: None (occurrence: None)
  Receive Date: 20071109
  Receipt Date: 20071030
  Transmission Date: 20080405
  Serious: Yes (Other)
  Sender: FDA-Public Use
  Company Number: US-PFIZER INC-2007091845

PATIENT
  Sex: Female
  Weight: 54.545 kg

DRUGS (3)
  1. DILANTIN [Suspect]
     Indication: MYOCLONIC EPILEPSY
  2. ALL OTHER THERAPEUTIC PRODUCTS [Concomitant]
  3. VITAMIN CAP [Concomitant]

REACTIONS (3)
  - HANGOVER [None]
  - HYPOAESTHESIA ORAL [None]
  - SEDATION [None]
